FAERS Safety Report 7691368-1 (Version None)
Quarter: 2011Q3

REPORT INFORMATION
  Report Type: 
  Country: None (occurrence: None)
  Receive Date: 20110818
  Receipt Date: 20110808
  Transmission Date: 20111222
  Serious: Yes (Other)
  Sender: FDA-Public Use
  Company Number: PHHY2011BR72570

PATIENT
  Sex: Female

DRUGS (4)
  1. GALVUS MET [Suspect]
     Dosage: 850/50 MG
  2. CIPROFIBRATE [Suspect]
     Dosage: 100 MG, UNK
  3. LIPITOR [Suspect]
     Dosage: 4 MG, UNK
  4. DIOVAN HCT [Suspect]
     Dosage: HCT 320/12.5MG

REACTIONS (5)
  - BLOOD PRESSURE DECREASED [None]
  - VOMITING [None]
  - HYPERGLYCAEMIA [None]
  - INFLUENZA [None]
  - DYSENTERY [None]
